FAERS Safety Report 8953063 (Version 1)
Quarter: 2012Q4

REPORT INFORMATION
  Report Type: 
  Country: BE (occurrence: BE)
  Receive Date: 20121205
  Receipt Date: 20121205
  Transmission Date: 20130627
  Serious: Yes (Hospitalization)
  Sender: FDA-Public Use
  Company Number: BE-ABBOTT-11P-013-0863460-00

PATIENT
  Age: 67 Year
  Sex: Male
  Weight: 67 kg

DRUGS (4)
  1. DUODOPA [Suspect]
     Indication: PARKINSON^S DISEASE
     Dosage: Route: Duodenal infusion
     Dates: start: 20101213, end: 20111012
  2. ESCITALOPRAM [Concomitant]
     Indication: DEPRESSION
     Route: 048
     Dates: start: 20110616
  3. AMITRIPTILYN [Concomitant]
     Indication: DEPRESSION
     Route: 048
     Dates: start: 20110616
  4. ANTIBIOTICS [Concomitant]
     Indication: ANTIBIOTIC PROPHYLAXIS

REACTIONS (3)
  - Duodenal ulcer [Not Recovered/Not Resolved]
  - Gastrooesophageal reflux disease [Not Recovered/Not Resolved]
  - Gastric ulcer [Not Recovered/Not Resolved]
